FAERS Safety Report 19315628 (Version 1)
Quarter: 2021Q2

REPORT INFORMATION
  Report Type: Spontaneous
  Country: PL (occurrence: PL)
  Receive Date: 20210527
  Receipt Date: 20210527
  Transmission Date: 20210717
  Serious: Yes (Hospitalization, Other)
  Sender: FDA-Public Use
  Company Number: PL-SUN PHARMACEUTICAL INDUSTRIES LTD-2021RR-298348

PATIENT
  Age: 62 Year
  Sex: Male

DRUGS (8)
  1. ROSUVASTATIN. [Suspect]
     Active Substance: ROSUVASTATIN
     Indication: HYPERTENSION
     Dosage: 40 MG, UNK
     Route: 065
  2. BISOPROLOL [Suspect]
     Active Substance: BISOPROLOL
     Indication: CORONARY ARTERY DISEASE
     Dosage: 7.5 MG, UNK
     Route: 065
  3. ACETYLSALICYLIC ACID [Suspect]
     Active Substance: ASPIRIN
     Indication: HYPERTENSION
     Dosage: 75 MG, UNK
     Route: 065
  4. PANTOPRAZOLE [Suspect]
     Active Substance: PANTOPRAZOLE
     Indication: HELICOBACTER GASTRITIS
     Dosage: 2X40 MG, UNK
     Route: 065
  5. CLOPIDOGREL [Concomitant]
     Active Substance: CLOPIDOGREL BISULFATE
     Indication: POSTOPERATIVE CARE
     Dosage: 75 MG, UNK
     Route: 065
  6. ESOMEPRAZOLE. [Concomitant]
     Active Substance: ESOMEPRAZOLE MAGNESIUM
     Indication: RENAL FAILURE
     Dosage: 20 MG, UNK
     Route: 065
  7. RAMIPRIL. [Suspect]
     Active Substance: RAMIPRIL
     Indication: CORONARY ARTERY DISEASE
     Dosage: 10 MG, UNK
     Route: 065
  8. AMLODIPINE,RAMIPRIL [Suspect]
     Active Substance: AMLODIPINE\RAMIPRIL
     Indication: PRODUCT USED FOR UNKNOWN INDICATION
     Dosage: 10/10 MG, UNK
     Route: 065

REACTIONS (28)
  - Left ventricular hypertrophy [Unknown]
  - Carotid arteriosclerosis [Unknown]
  - Carotid artery stenosis [Unknown]
  - Anaemia macrocytic [Unknown]
  - Ejection fraction decreased [Unknown]
  - Tricuspid valve incompetence [Unknown]
  - Ventricular hypokinesia [Unknown]
  - Helicobacter gastritis [Unknown]
  - Palpitations [Unknown]
  - Acute kidney injury [Unknown]
  - Hyperlipidaemia [Unknown]
  - Angiopathy [Unknown]
  - Occult blood [Unknown]
  - Cardiac failure [Unknown]
  - Diastolic dysfunction [Unknown]
  - Pericardial effusion [Unknown]
  - Oedema peripheral [Unknown]
  - Rales [Unknown]
  - Acute myocardial infarction [Unknown]
  - Chronic kidney disease [Unknown]
  - Hepatojugular reflux [Unknown]
  - Coronary artery disease [Unknown]
  - Systolic dysfunction [Unknown]
  - Dyspnoea at rest [Unknown]
  - Mitral valve incompetence [Unknown]
  - Aortic valve incompetence [Unknown]
  - Asthenia [Unknown]
  - Electrocardiogram Q wave abnormal [Unknown]

NARRATIVE: CASE EVENT DATE: 20190918
